FAERS Safety Report 9288667 (Version 1)
Quarter: 2012Q4

REPORT INFORMATION
  Report Type: Spontaneous
  Country: JP (occurrence: None)
  Receive Date: 20120924
  Receipt Date: 20120924
  Transmission Date: 20130627
  Serious: No
  Sender: FDA-Public Use
  Company Number: ADR-2011-11278

PATIENT
  Age: 24 Year
  Sex: Male

DRUGS (1)
  1. GABALON [Suspect]
     Indication: SPASTICITY

REACTIONS (4)
  - Muscle spasticity [None]
  - Hyperhidrosis [None]
  - Calculus urinary [None]
  - Pain [None]
